FAERS Safety Report 16607968 (Version 2)
Quarter: 2020Q4

REPORT INFORMATION
  Report Type: Spontaneous
  Country: US (occurrence: US)
  Receive Date: 20190722
  Receipt Date: 20201229
  Transmission Date: 20210113
  Serious: No
  Sender: FDA-Public Use
  Company Number: US-NVP-000013

PATIENT

DRUGS (2)
  1. THIOTHIXENE. [Suspect]
     Active Substance: THIOTHIXENE
     Indication: INTELLECTUAL DISABILITY
     Dosage: DAILY
     Route: 065
  2. THIOTHIXENE. [Suspect]
     Active Substance: THIOTHIXENE
     Indication: INTELLECTUAL DISABILITY
     Dosage: EVERY OTHER DAY
     Route: 065

REACTIONS (1)
  - Product use in unapproved indication [Unknown]
